FAERS Safety Report 16167338 (Version 1)
Quarter: 2019Q2

REPORT INFORMATION
  Report Type: Report from Study
  Country: US (occurrence: US)
  Receive Date: 20190408
  Receipt Date: 20190408
  Transmission Date: 20190711
  Serious: Yes (Other)
  Sender: FDA-Public Use
  Company Number: US-ROCHE-2298333

PATIENT

DRUGS (1)
  1. OBINUTUZUMAB. [Suspect]
     Active Substance: OBINUTUZUMAB
     Indication: CHRONIC LYMPHOCYTIC LEUKAEMIA
     Dosage: ON DAYS 1, 8 AND 15 IN CYCLE 1 FOLLOWED BY DAY 1 INFUSION IN CYCLES 2 - 6
     Route: 042

REACTIONS (1)
  - Neuroendocrine carcinoma of the skin [Unknown]
